FAERS Safety Report 8046196-4 (Version None)
Quarter: 2012Q1

REPORT INFORMATION
  Report Type: 
  Country: None (occurrence: None)
  Receive Date: 20120113
  Receipt Date: 20120112
  Transmission Date: 20120608
  Serious: Yes (Life-Threatening)
  Sender: FDA-Public Use
  Company Number: IT-SANOFI-AVENTIS-2011SA036684

PATIENT
  Age: 64 Year
  Sex: Male

DRUGS (1)
  1. TAXOTERE [Suspect]
     Route: 042
     Dates: start: 20110421, end: 20110421

REACTIONS (1)
  - AUTOIMMUNE THROMBOCYTOPENIA [None]
